FAERS Safety Report 4529988-5 (Version None)
Quarter: 2004Q4

REPORT INFORMATION
  Report Type: 
  Country: None (occurrence: None)
  Receive Date: 20041217
  Receipt Date: 20041206
  Transmission Date: 20050328
  Serious: Yes (Life-Threatening)
  Sender: FDA-Public Use
  Company Number: US-JNJFOC-20041201527

PATIENT
  Age: 67 Year
  Sex: Male

DRUGS (1)
  1. DURAGESIC [Suspect]
     Route: 062
     Dates: end: 20040816

REACTIONS (2)
  - DERMATITIS ALLERGIC [None]
  - RESPIRATORY DISORDER [None]
